FAERS Safety Report 4825653-5 (Version None)
Quarter: 2005Q4

REPORT INFORMATION
  Report Type: 
  Country: None (occurrence: None)
  Receive Date: 20051111
  Receipt Date: 20051031
  Transmission Date: 20060501
  Serious: Yes (Death, Hospitalization)
  Sender: FDA-Public Use
  Company Number: JP-AVENTIS-200513201JP

PATIENT
  Age: 76 Year
  Sex: Female

DRUGS (5)
  1. AMARYL [Suspect]
     Route: 048
  2. INSULIN [Suspect]
  3. BASEN [Suspect]
  4. INSULIN [Concomitant]
  5. HYPNOTICS AND SEDATIVES [Concomitant]

REACTIONS (4)
  - BLOOD GLUCOSE DECREASED [None]
  - COMA [None]
  - HYPOGLYCAEMIC COMA [None]
  - ORAL INTAKE REDUCED [None]
